FAERS Safety Report 14985412 (Version 1)
Quarter: 2018Q2

REPORT INFORMATION
  Report Type: Report from Study
  Country: US (occurrence: US)
  Receive Date: 20180607
  Receipt Date: 20180607
  Transmission Date: 20180711
  Serious: Yes (Hospitalization)
  Sender: FDA-Public Use
  Company Number: US-PFIZER INC-2018220949

PATIENT
  Age: 23 Year
  Sex: Male
  Weight: 79.5 kg

DRUGS (5)
  1. AVELUMAB [Suspect]
     Active Substance: AVELUMAB
     Indication: RENAL CELL CARCINOMA
     Dosage: MG, EVERY 2 WEEKS
     Route: 042
  2. INLYTA [Suspect]
     Active Substance: AXITINIB
     Indication: RENAL CELL CARCINOMA
     Dosage: MG, TWICE DAILY CONTINUOUS
     Route: 048
  3. SYNTHROID [Concomitant]
     Active Substance: LEVOTHYROXINE SODIUM
     Dosage: 25 MCG, 1X/DAY
     Route: 048
     Dates: start: 20180101
  4. REGENECARE [Concomitant]
     Dosage: 85 G, 1X/DAY
     Route: 061
     Dates: start: 20180303
  5. COMBIGAN [Concomitant]
     Active Substance: BRIMONIDINE TARTRATE\TIMOLOL MALEATE
     Dosage: (0.2-0.5) %, 1X/DAY
     Route: 061
     Dates: start: 20161019

REACTIONS (1)
  - Secondary adrenocortical insufficiency [Recovering/Resolving]
